FAERS Safety Report 7577756-2 (Version None)
Quarter: 2011Q2

REPORT INFORMATION
  Report Type: 
  Country: None (occurrence: None)
  Receive Date: 20110621
  Receipt Date: 20110606
  Transmission Date: 20111010
  Serious: Yes (Other)
  Sender: FDA-Public Use
  Company Number: AUR-APL-2011-02921

PATIENT
  Age: 89 Year
  Sex: Female
  Weight: 53 kg

DRUGS (10)
  1. FERROUS FUMARATE [Concomitant]
  2. OMEPRAZOLE [Concomitant]
  3. ACETAMINOPHEN [Concomitant]
  4. DOCUSATE SODIUM [Concomitant]
  5. LEVEMIR [Concomitant]
  6. ADCAL-D3 (LEKOVITCA) [Concomitant]
  7. CITALOPRAM HYDROBROMIDE [Concomitant]
  8. LOSARTAN POTASSIUM [Concomitant]
  9. ALENDRONATE SODIUM [Suspect]
     Indication: OSTEOPOROSIS
     Dosage: 10 MG (10 MG, 1 IN 1 D), ORAL
     Route: 048
  10. PRAVASTATIN SODIUM [Concomitant]

REACTIONS (3)
  - MELAENA [None]
  - OESOPHAGEAL ULCER [None]
  - HYPOTENSION [None]
